FAERS Safety Report 17280818 (Version 2)
Quarter: 2021Q4

REPORT INFORMATION
  Report Type: Report from Study
  Country: CA (occurrence: None)
  Receive Date: 20200117
  Receipt Date: 20211228
  Transmission Date: 20220304
  Serious: Yes (Other)
  Sender: FDA-Public Use
  Company Number: CA-ORION CORPORATION ORION PHARMA-TREX2020-0386

PATIENT
  Age: 7 Year
  Sex: Male

DRUGS (44)
  1. METHOTREXATE [Suspect]
     Active Substance: METHOTREXATE
     Indication: Product used for unknown indication
     Route: 065
  2. ILARIS [Suspect]
     Active Substance: CANAKINUMAB
     Indication: Still^s disease
     Route: 058
  3. ILARIS [Suspect]
     Active Substance: CANAKINUMAB
     Route: 058
  4. ILARIS [Suspect]
     Active Substance: CANAKINUMAB
     Route: 058
  5. ILARIS [Suspect]
     Active Substance: CANAKINUMAB
     Route: 058
  6. ILARIS [Suspect]
     Active Substance: CANAKINUMAB
     Route: 058
  7. ILARIS [Suspect]
     Active Substance: CANAKINUMAB
     Route: 058
  8. ILARIS [Suspect]
     Active Substance: CANAKINUMAB
     Route: 058
  9. ILARIS [Suspect]
     Active Substance: CANAKINUMAB
     Route: 058
  10. ILARIS [Suspect]
     Active Substance: CANAKINUMAB
     Route: 058
  11. ILARIS [Suspect]
     Active Substance: CANAKINUMAB
     Route: 058
  12. ILARIS [Suspect]
     Active Substance: CANAKINUMAB
     Route: 065
  13. ILARIS [Suspect]
     Active Substance: CANAKINUMAB
     Route: 058
  14. ILARIS [Suspect]
     Active Substance: CANAKINUMAB
     Route: 058
  15. ILARIS [Suspect]
     Active Substance: CANAKINUMAB
     Route: 058
  16. ILARIS [Suspect]
     Active Substance: CANAKINUMAB
     Dosage: CYCLIC
     Route: 058
  17. ILARIS [Suspect]
     Active Substance: CANAKINUMAB
     Dosage: CYCLIC
     Route: 058
  18. ILARIS [Suspect]
     Active Substance: CANAKINUMAB
     Dosage: CYCLIC
     Route: 058
  19. ILARIS [Suspect]
     Active Substance: CANAKINUMAB
     Route: 058
  20. ILARIS [Suspect]
     Active Substance: CANAKINUMAB
     Route: 058
  21. ILARIS [Suspect]
     Active Substance: CANAKINUMAB
     Route: 058
  22. ILARIS [Suspect]
     Active Substance: CANAKINUMAB
     Route: 058
  23. ILARIS [Suspect]
     Active Substance: CANAKINUMAB
     Route: 058
  24. ILARIS [Suspect]
     Active Substance: CANAKINUMAB
     Route: 058
  25. ILARIS [Suspect]
     Active Substance: CANAKINUMAB
     Route: 058
  26. ILARIS [Suspect]
     Active Substance: CANAKINUMAB
     Route: 065
  27. ILARIS [Suspect]
     Active Substance: CANAKINUMAB
     Route: 058
  28. ILARIS [Suspect]
     Active Substance: CANAKINUMAB
     Route: 058
  29. ILARIS [Suspect]
     Active Substance: CANAKINUMAB
     Route: 058
  30. ILARIS [Suspect]
     Active Substance: CANAKINUMAB
     Route: 058
  31. ILARIS [Suspect]
     Active Substance: CANAKINUMAB
     Route: 065
  32. ILARIS [Suspect]
     Active Substance: CANAKINUMAB
     Route: 058
  33. ILARIS [Suspect]
     Active Substance: CANAKINUMAB
     Route: 058
  34. ILARIS [Suspect]
     Active Substance: CANAKINUMAB
     Route: 058
  35. ILARIS [Suspect]
     Active Substance: CANAKINUMAB
     Route: 058
  36. ILARIS [Suspect]
     Active Substance: CANAKINUMAB
     Route: 058
  37. ILARIS [Suspect]
     Active Substance: CANAKINUMAB
     Route: 058
  38. ILARIS [Suspect]
     Active Substance: CANAKINUMAB
     Route: 058
  39. ILARIS [Suspect]
     Active Substance: CANAKINUMAB
     Route: 058
  40. ILARIS [Suspect]
     Active Substance: CANAKINUMAB
     Route: 058
  41. FOLIC ACID [Concomitant]
     Active Substance: FOLIC ACID
     Route: 065
  42. INDOMETHACIN [Concomitant]
     Active Substance: INDOMETHACIN
     Route: 065
  43. MELOXICAM [Concomitant]
     Active Substance: MELOXICAM
     Route: 065
  44. ANAKINRA [Concomitant]
     Active Substance: ANAKINRA
     Route: 065

REACTIONS (17)
  - Drug ineffective [Not Recovered/Not Resolved]
  - Inappropriate schedule of product administration [Not Recovered/Not Resolved]
  - Rhinorrhoea [Not Recovered/Not Resolved]
  - Inflammation [Not Recovered/Not Resolved]
  - Oropharyngeal pain [Not Recovered/Not Resolved]
  - Blood pressure decreased [Not Recovered/Not Resolved]
  - Cough [Not Recovered/Not Resolved]
  - Fatigue [Not Recovered/Not Resolved]
  - Pneumonia [Not Recovered/Not Resolved]
  - Rash [Not Recovered/Not Resolved]
  - Upper respiratory tract infection [Not Recovered/Not Resolved]
  - Pain in extremity [Not Recovered/Not Resolved]
  - Joint swelling [Not Recovered/Not Resolved]
  - Arthralgia [Not Recovered/Not Resolved]
  - Juvenile idiopathic arthritis [Not Recovered/Not Resolved]
  - Arthritis [Not Recovered/Not Resolved]
  - Quality of life decreased [Not Recovered/Not Resolved]
